FAERS Safety Report 12409440 (Version 2)
Quarter: 2016Q2

REPORT INFORMATION
  Report Type: Spontaneous
  Country: None (occurrence: US)
  Receive Date: 20160526
  Receipt Date: 20160609
  Transmission Date: 20160815
  Serious: No
  Sender: FDA-Public Use
  Company Number: US-RARE DISEASE THERAPEUTICS, INC.-1052884

PATIENT
  Age: 14 Year
  Sex: Male
  Weight: 49 kg

DRUGS (4)
  1. MULTI-VITAMIN [Concomitant]
     Active Substance: .ALPHA.-TOCOPHEROL ACETATE, DL-\ASCORBIC ACID\CYANOCOBALAMIN\FLUORIDE ION\FOLIC ACID\NIACIN\PYRIDOXINE\RIBOFLAVIN\THIAMINE\VITAMIN A\VITAMIN D
  2. VITAMIN C [Concomitant]
     Active Substance: ASCORBIC ACID
  3. CYSTADANE [Suspect]
     Active Substance: BETAINE
     Route: 048
     Dates: start: 20151031
  4. VITAMIN B6 [Concomitant]
     Active Substance: PYRIDOXINE HYDROCHLORIDE

REACTIONS (2)
  - Prescribed overdose [None]
  - Abdominal discomfort [None]

NARRATIVE: CASE EVENT DATE: 20160418
